FAERS Safety Report 25425013 (Version 1)
Quarter: 2025Q2

REPORT INFORMATION
  Report Type: Spontaneous
  Country: US (occurrence: US)
  Receive Date: 20250611
  Receipt Date: 20250611
  Transmission Date: 20250717
  Serious: Yes (Other)
  Sender: NOVARTIS
  Company Number: US-002147023-NVSC2025US069614

PATIENT
  Sex: Female

DRUGS (6)
  1. OCTREOTIDE [Suspect]
     Active Substance: OCTREOTIDE
     Indication: Gastroenteropancreatic neuroendocrine tumour disease
     Route: 065
  2. OCTREOTIDE [Suspect]
     Active Substance: OCTREOTIDE
  3. OCTREOTIDE [Suspect]
     Active Substance: OCTREOTIDE
  4. LANREOTIDE [Suspect]
     Active Substance: LANREOTIDE
     Indication: Gastroenteropancreatic neuroendocrine tumour disease
     Route: 065
  5. XELODA [Suspect]
     Active Substance: CAPECITABINE
     Indication: Gastroenteropancreatic neuroendocrine tumour disease
     Route: 065
  6. TEMODAR [Suspect]
     Active Substance: TEMOZOLOMIDE
     Indication: Gastroenteropancreatic neuroendocrine tumour disease
     Route: 065

REACTIONS (2)
  - Gastroenteropancreatic neuroendocrine tumour disease [Unknown]
  - Malignant neoplasm progression [Unknown]
